FAERS Safety Report 14036997 (Version 1)
Quarter: 2017Q4

REPORT INFORMATION
  Report Type: Spontaneous
  Country: DE (occurrence: DE)
  Receive Date: 20171004
  Receipt Date: 20171004
  Transmission Date: 20180321
  Serious: Yes (Congenital Anomaly, Other)
  Sender: FDA-Public Use
  Company Number: DE-TORRENT-00007168

PATIENT
  Age: 1 Day
  Sex: Male
  Weight: 2 kg

DRUGS (3)
  1. TRAZODONE [Suspect]
     Active Substance: TRAZODONE HYDROCHLORIDE
  2. METHYLDOPA. [Concomitant]
     Active Substance: METHYLDOPA
  3. CITALOPRAM HYDROBROMIDE. [Suspect]
     Active Substance: CITALOPRAM HYDROBROMIDE

REACTIONS (9)
  - Foetal exposure during pregnancy [Unknown]
  - Atrial septal defect [Unknown]
  - Hypoglycaemia neonatal [Recovered/Resolved]
  - Congenital pneumonia [Recovered/Resolved]
  - Infantile apnoea [Recovered/Resolved]
  - Drug withdrawal syndrome neonatal [Recovered/Resolved]
  - Respiratory disorder neonatal [Recovered/Resolved]
  - Large for dates baby [Recovered/Resolved]
  - Diabetic foetopathy [Unknown]

NARRATIVE: CASE EVENT DATE: 20170702
